FAERS Safety Report 6770568-9 (Version None)
Quarter: 2010Q2

REPORT INFORMATION
  Report Type: 
  Country: None (occurrence: None)
  Receive Date: 20100615
  Receipt Date: 20100604
  Transmission Date: 20101027
  Serious: Yes (Other)
  Sender: FDA-Public Use
  Company Number: PHHY2010NL37229

PATIENT
  Sex: Male

DRUGS (4)
  1. ZOMETA [Suspect]
     Dosage: 4 MG/5 ML
     Route: 042
     Dates: start: 20091012
  2. ZOMETA [Suspect]
     Dosage: 4 MG/5 ML
     Route: 042
     Dates: start: 20091110
  3. ZOMETA [Suspect]
     Dosage: 4 MG/5 ML
     Route: 042
     Dates: start: 20091208
  4. ZOMETA [Suspect]
     Dosage: 4 MG/5 ML
     Route: 042
     Dates: start: 20100106

REACTIONS (2)
  - ARRHYTHMIA [None]
  - PNEUMONIA [None]
